FAERS Safety Report 10715060 (Version 1)
Quarter: 2015Q1

REPORT INFORMATION
  Report Type: Spontaneous
  Country: US (occurrence: US)
  Receive Date: 20150115
  Receipt Date: 20150115
  Transmission Date: 20150721
  Serious: Yes (Death, Other)
  Sender: FDA-Public Use
  Company Number: US-GLAXOSMITHKLINE-US2015GSK003071

PATIENT
  Age: 26 Year

DRUGS (4)
  1. BETA BLOCKER [Suspect]
     Active Substance: UNSPECIFIED INGREDIENT
     Route: 048
  2. ZOLPIDEM [Suspect]
     Active Substance: ZOLPIDEM\ZOLPIDEM TARTRATE
     Route: 048
  3. BUPROPION [Suspect]
     Active Substance: BUPROPION
     Route: 048
  4. BENZODIAZEPINE [Suspect]
     Active Substance: BENZODIAZEPINE
     Route: 048

REACTIONS (1)
  - Completed suicide [Fatal]
